FAERS Safety Report 18313104 (Version 3)
Quarter: 2021Q4

REPORT INFORMATION
  Report Type: Report from Study
  Country: GB (occurrence: GB)
  Receive Date: 20200925
  Receipt Date: 20211231
  Transmission Date: 20220303
  Serious: Yes (Hospitalization, Other)
  Sender: FDA-Public Use
  Company Number: GB-EMA-DD-20200904-SHARMA_D2-114349

PATIENT
  Age: 55 Year
  Sex: Female
  Weight: 82.3 kg

DRUGS (23)
  1. CARBOPLATIN [Suspect]
     Active Substance: CARBOPLATIN
     Indication: Non-small cell lung cancer
     Dosage: 700 MG, EVERY 3 WEEKS
     Route: 042
     Dates: start: 20191108
  2. PACLITAXEL [Suspect]
     Active Substance: PACLITAXEL
     Indication: Non-small cell lung cancer
     Dosage: 420 MG, EVERY 3 WEEKS
     Route: 042
     Dates: start: 20191108
  3. ETOPOSIDE [Suspect]
     Active Substance: ETOPOSIDE
     Indication: Routine health maintenance
     Route: 065
     Dates: start: 20191108
  4. ATEZOLIZUMAB [Suspect]
     Active Substance: ATEZOLIZUMAB
     Indication: Small cell lung cancer
     Dosage: 1200 MILLIGRAM, Q3W (08 NOV 2019: DOSE OF LAST ATEZOLIZUMAB ADMINISTERED PRIOR TO AE ONSET), SUBSEQU
     Route: 042
     Dates: start: 20191219
  5. ATEZOLIZUMAB [Suspect]
     Active Substance: ATEZOLIZUMAB
     Indication: Transitional cell carcinoma
     Dosage: 1200 MILLIGRAM, Q3W (1200 MG, TIW)
     Route: 042
     Dates: start: 20191108
  6. ATEZOLIZUMAB [Suspect]
     Active Substance: ATEZOLIZUMAB
     Indication: Non-small cell lung cancer
     Dosage: (MOST RECENT DOSE OF ATEZOLIZUMAB PRIOR TO SAE ONSET: 08/NOV/2019 SUBSEQUENT NUMBER: 19/DEC/2019), 1
     Route: 041
  7. BEVACIZUMAB [Suspect]
     Active Substance: BEVACIZUMAB
     Indication: Non-small cell lung cancer
     Dosage: 1200 MG, EVERY 3 WEEKS
     Route: 042
     Dates: start: 20191108
  8. METFORMIN [Concomitant]
     Active Substance: METFORMIN HYDROCHLORIDE
     Indication: Hyperglycaemia
     Dosage: 2 G
     Route: 048
  9. METFORMIN [Concomitant]
     Active Substance: METFORMIN HYDROCHLORIDE
     Dosage: 2 GRAM DAILY; 2 GRAM, QD
     Route: 048
     Dates: start: 20191126
  10. METFORMIN [Concomitant]
     Active Substance: METFORMIN HYDROCHLORIDE
     Dosage: 2 GRAM, QD
     Route: 048
     Dates: start: 20191126
  11. METFORMIN [Concomitant]
     Active Substance: METFORMIN HYDROCHLORIDE
     Dosage: 2 GRAM, QD, THERAPY END DATE: NASK
     Route: 048
     Dates: start: 20191126
  12. METFORMIN [Concomitant]
     Active Substance: METFORMIN HYDROCHLORIDE
     Dosage: 1 G, 2X/DAY, THERAPY END DATE: NASK
     Route: 048
     Dates: start: 20191126
  13. ATENOLOL [Concomitant]
     Active Substance: ATENOLOL
     Indication: Hypertension
     Dosage: 50 MILLIGRAM DAILY; 50 MG, 1X/DAY
     Route: 048
     Dates: start: 20191126
  14. IBUPROFEN [Concomitant]
     Active Substance: IBUPROFEN
     Indication: Analgesic therapy
     Dosage: 1200 MILLIGRAM DAILY; 400 MG, 3X/DAY
     Route: 048
     Dates: start: 20191126
  15. IBUPROFEN [Concomitant]
     Active Substance: IBUPROFEN
     Indication: Analgesic therapy
  16. AMOXICILLIN\CLAVULANATE POTASSIUM [Concomitant]
     Active Substance: AMOXICILLIN\CLAVULANATE POTASSIUM
     Dosage: 1875 MILLIGRAM DAILY; 625 MG, 3X/DAY, CO-AMOXICLAV [AMOXICILLIN;CLAVULANATE POTASSIUM]
     Route: 048
     Dates: start: 20191121, end: 20191126
  17. ATORVASTATIN [Concomitant]
     Active Substance: ATORVASTATIN
     Dosage: 10 MILLIGRAM DAILY; 10 MG, 1X/DAY
     Route: 048
     Dates: start: 20191126
  18. FENTANYL [Concomitant]
     Active Substance: FENTANYL
     Indication: Analgesic therapy
     Dosage: FENTANYL PATCH, 25 MCG/HR, EVERY 3 DAYS, CYCLICAL, PATCH, ORAL
     Route: 061
     Dates: start: 20191126
  19. ACETAMINOPHEN [Concomitant]
     Active Substance: ACETAMINOPHEN
     Indication: Analgesic therapy
     Dosage: 1 G, WEEKLY
     Route: 048
     Dates: start: 20191126
  20. VENLAFAXINE [Concomitant]
     Active Substance: VENLAFAXINE HYDROCHLORIDE
     Dosage: 75 MILLIGRAM DAILY; 75 MG, 1X/DAY
     Route: 048
     Dates: start: 20191126
  21. SITAGLIPTIN [Concomitant]
     Active Substance: SITAGLIPTIN
     Dosage: 100 MG, MONTHLY
     Route: 048
     Dates: start: 20191126
  22. OMEPRAZOLE [Concomitant]
     Active Substance: OMEPRAZOLE
     Dosage: 10 MILLIGRAM DAILY; 10 MG, 1X/DAY
     Route: 048
     Dates: start: 20191126
  23. PIPERACILLIN SODIUM\TAZOBACTAM SODIUM [Concomitant]
     Active Substance: PIPERACILLIN SODIUM\TAZOBACTAM SODIUM
     Indication: Product used for unknown indication
     Dosage: UNK
     Route: 065

REACTIONS (9)
  - Pyrexia [Recovered/Resolved]
  - Night sweats [Not Recovered/Not Resolved]
  - Chest pain [Recovered/Resolved]
  - Muscular weakness [Not Recovered/Not Resolved]
  - Alopecia [Not Recovered/Not Resolved]
  - Dyspnoea [Not Recovered/Not Resolved]
  - Fatigue [Not Recovered/Not Resolved]
  - Epistaxis [Recovered/Resolved]
  - Hypoaesthesia [Not Recovered/Not Resolved]

NARRATIVE: CASE EVENT DATE: 20191108
